FAERS Safety Report 9127044 (Version 1)
Quarter: 2013Q1

REPORT INFORMATION
  Report Type: Spontaneous
  Country: GB (occurrence: GB)
  Receive Date: 20130122
  Receipt Date: 20130122
  Transmission Date: 20140127
  Serious: Yes (Death)
  Sender: FDA-Public Use
  Company Number: GB-ASTRAZENECA-2013SE03930

PATIENT
  Age: 64 Year
  Sex: Female
  Weight: 140 kg

DRUGS (19)
  1. TICAGRELOR [Suspect]
     Indication: ACUTE CORONARY SYNDROME
     Route: 048
     Dates: start: 20130103, end: 20130104
  2. ENOXAPARIN [Suspect]
     Indication: ACUTE CORONARY SYNDROME
     Route: 058
     Dates: start: 20130102
  3. ENOXAPARIN [Suspect]
     Indication: ACUTE CORONARY SYNDROME
     Route: 058
     Dates: end: 20130104
  4. ASPIRIN [Concomitant]
     Indication: ACUTE CORONARY SYNDROME
  5. ATORVASTATIN [Concomitant]
  6. BISOPROLOL [Concomitant]
  7. BUMETANIDE [Concomitant]
  8. AMOXICILLIN\CLAVULANATE POTASSIUM [Concomitant]
  9. CODEINE [Concomitant]
  10. CREON [Concomitant]
  11. CYCLIZINE [Concomitant]
  12. FERROUS FUMARATE [Concomitant]
  13. ISOSORBIDE MONONITRATE [Concomitant]
  14. OMEPRAZOLE [Concomitant]
  15. PAROXETINE [Concomitant]
  16. PREGABALIN [Concomitant]
  17. SENNA [Concomitant]
  18. TAZOCIN [Concomitant]
  19. ZOPICLONE [Concomitant]

REACTIONS (2)
  - Cerebral haemorrhage [Fatal]
  - Incorrect dose administered [Fatal]
